FAERS Safety Report 11258457 (Version 1)
Quarter: 2015Q3

REPORT INFORMATION
  Report Type: Spontaneous
  Country: GB (occurrence: GB)
  Receive Date: 20150710
  Receipt Date: 20150710
  Transmission Date: 20151125
  Serious: Yes (Disabling, Other)
  Sender: FDA-Public Use
  Company Number: GB-BAYER-2015-368677

PATIENT
  Age: 44 Year
  Sex: Female

DRUGS (2)
  1. CIPROFLOXACIN MONOHYDROCHLORIDE [Suspect]
     Active Substance: CIPROFLOXACIN
     Indication: URINARY TRACT INFECTION
     Dosage: 500 MG, BID
     Dates: start: 20150413, end: 20150425
  2. VAGIFEM [Concomitant]
     Active Substance: ESTRADIOL

REACTIONS (6)
  - Photosensitivity reaction [Recovering/Resolving]
  - Headache [Recovering/Resolving]
  - Tendonitis [Recovering/Resolving]
  - Muscle spasms [Recovering/Resolving]
  - Feeling abnormal [Recovering/Resolving]
  - Neuropathy peripheral [Recovering/Resolving]

NARRATIVE: CASE EVENT DATE: 20150425
